FAERS Safety Report 4372338-8 (Version None)
Quarter: 2004Q2

REPORT INFORMATION
  Report Type: 
  Country: None (occurrence: None)
  Receive Date: 20040526
  Receipt Date: 20040519
  Transmission Date: 20050107
  Serious: Yes (Disabling)
  Sender: FDA-Public Use
  Company Number: 2002129903FR

PATIENT
  Age: 28 Year
  Sex: Female

DRUGS (3)
  1. LOGIFLOX (LOMEFLOXACIN HYDROCHLORIDE) TABLET [Suspect]
     Indication: URINARY TRACT INFECTION
     Dosage: 400 MG DAILY, ORAL
     Route: 048
     Dates: start: 20020723, end: 20020723
  2. BREXIN ^ROBAPHARM^ (PIROXICAM BETADEX) [Suspect]
     Indication: ARTHRALGIA
     Dosage: ORAL
     Route: 048
     Dates: start: 20020723
  3. TRINORDIOL [Concomitant]

REACTIONS (2)
  - REFLEX SYMPATHETIC DYSTROPHY [None]
  - TENDONITIS [None]
